FAERS Safety Report 7897106-1 (Version None)
Quarter: 2011Q4

REPORT INFORMATION
  Report Type: 
  Country: None (occurrence: None)
  Receive Date: 20111103
  Receipt Date: 20111021
  Transmission Date: 20120403
  Serious: No
  Sender: FDA-Public Use
  Company Number: 2011P1009604

PATIENT
  Age: 67 Year
  Sex: Female
  Weight: 71.8951 kg

DRUGS (3)
  1. WARFARIN SODIUM [Suspect]
     Indication: THROMBOSIS
     Dosage: 7.5 MG; QD; PO
     Route: 048
     Dates: start: 20100601
  2. ZONISAMIDE [Concomitant]
  3. BENZAPRINE [Concomitant]

REACTIONS (3)
  - FALL [None]
  - CONTUSION [None]
  - INTERNATIONAL NORMALISED RATIO INCREASED [None]
